FAERS Safety Report 6533620-9 (Version None)
Quarter: 2010Q1

REPORT INFORMATION
  Report Type: 
  Country: None (occurrence: None)
  Receive Date: 20100108
  Receipt Date: 20100108
  Transmission Date: 20100710
  Serious: No
  Sender: FDA-Public Use
  Company Number: None

PATIENT
  Age: 59 Year
  Sex: Female
  Weight: 76.2043 kg

DRUGS (1)
  1. FLUCONAZOLE [Suspect]
     Indication: VULVOVAGINAL MYCOTIC INFECTION
     Dosage: 150MG ONE TIME PO
     Route: 048
     Dates: start: 20100105, end: 20100105

REACTIONS (9)
  - HYPOPHAGIA [None]
  - LIP SWELLING [None]
  - OROPHARYNGEAL BLISTERING [None]
  - PAIN [None]
  - PAIN OF SKIN [None]
  - RASH ERYTHEMATOUS [None]
  - RASH PRURITIC [None]
  - TONGUE BLISTERING [None]
  - TONGUE DISCOLOURATION [None]
